FAERS Safety Report 24920123 (Version 1)
Quarter: 2025Q1

REPORT INFORMATION
  Report Type: Spontaneous
  Country: BR (occurrence: BR)
  Receive Date: 20250204
  Receipt Date: 20250204
  Transmission Date: 20250409
  Serious: No
  Sender: EXELIXIS
  Company Number: BR-IPSEN Group, Research and Development-2024-00723

PATIENT
  Sex: Female

DRUGS (2)
  1. CABOMETYX [Suspect]
     Active Substance: CABOZANTINIB S-MALATE
     Indication: Neuroendocrine tumour
     Route: 065
  2. CABOMETYX [Suspect]
     Active Substance: CABOZANTINIB S-MALATE
     Indication: Off label use
     Route: 065

REACTIONS (6)
  - Weight increased [Unknown]
  - Abdominal distension [Unknown]
  - Pallor [Unknown]
  - Asthenia [Unknown]
  - Illness [Unknown]
  - Off label use [Unknown]
